FAERS Safety Report 9015024 (Version 1)
Quarter: 2013Q1

REPORT INFORMATION
  Report Type: Spontaneous
  Country: BR (occurrence: BR)
  Receive Date: 20130116
  Receipt Date: 20130116
  Transmission Date: 20140127
  Serious: Yes (Other)
  Sender: FDA-Public Use
  Company Number: BR-GE HEALTHCARE MEDICAL DIAGNOSTICS-OMPQ-PR-1301S-0027

PATIENT
  Age: 66 Year
  Sex: Male

DRUGS (3)
  1. OMNIPAQUE [Suspect]
     Indication: ISCHAEMIA
     Route: 013
     Dates: start: 20130108, end: 20130108
  2. OMNIPAQUE [Suspect]
     Indication: DIAGNOSTIC PROCEDURE
  3. LOSARTAN [Concomitant]

REACTIONS (4)
  - Oxygen saturation decreased [Unknown]
  - Hypotension [Unknown]
  - Bradycardia [Unknown]
  - Tremor [Unknown]
